FAERS Safety Report 15203523 (Version 15)
Quarter: 2025Q3

REPORT INFORMATION
  Report Type: Other
  Country: CA (occurrence: CA)
  Receive Date: 20180726
  Receipt Date: 20250805
  Transmission Date: 20251020
  Serious: Yes (Other)
  Sender: PFIZER
  Company Number: CA-PFIZER INC-2018300398

PATIENT

DRUGS (28)
  1. PANTOPRAZOLE [Suspect]
     Active Substance: PANTOPRAZOLE
     Route: 064
  2. PANTOPRAZOLE [Suspect]
     Active Substance: PANTOPRAZOLE
     Route: 064
  3. LORAZEPAM [Suspect]
     Active Substance: LORAZEPAM
     Dosage: 0.5 MG, 1X/DAY (AT BEDTIME)
     Route: 064
  4. LORAZEPAM [Suspect]
     Active Substance: LORAZEPAM
     Dosage: 0.5 MILLIGRAM, QD
     Route: 064
  5. ONDANSETRON HYDROCHLORIDE [Suspect]
     Active Substance: ONDANSETRON HYDROCHLORIDE
     Route: 064
  6. ONDANSETRON HYDROCHLORIDE [Suspect]
     Active Substance: ONDANSETRON HYDROCHLORIDE
     Route: 064
  7. ONDANSETRON HYDROCHLORIDE [Suspect]
     Active Substance: ONDANSETRON HYDROCHLORIDE
     Route: 064
  8. HYDROMORPHONE HYDROCHLORIDE [Suspect]
     Active Substance: HYDROMORPHONE HYDROCHLORIDE
     Indication: Traumatic pain
     Dosage: 8 MG, 3X/DAY (EVERY 8 HOURS)
     Route: 064
  9. HYDROMORPHONE HYDROCHLORIDE [Suspect]
     Active Substance: HYDROMORPHONE HYDROCHLORIDE
     Dosage: 8 MG, Q8HR
     Route: 064
  10. HYDROMORPHONE HYDROCHLORIDE [Suspect]
     Active Substance: HYDROMORPHONE HYDROCHLORIDE
     Dosage: 8 MG, Q4HR
     Route: 064
  11. HYDROMORPHONE HYDROCHLORIDE [Suspect]
     Active Substance: HYDROMORPHONE HYDROCHLORIDE
     Route: 064
  12. HYDROMORPHONE HYDROCHLORIDE [Suspect]
     Active Substance: HYDROMORPHONE HYDROCHLORIDE
     Route: 064
  13. FENTANYL [Suspect]
     Active Substance: FENTANYL
     Indication: Traumatic pain
     Route: 064
  14. FENTANYL [Suspect]
     Active Substance: FENTANYL
     Route: 064
  15. FENTANYL [Suspect]
     Active Substance: FENTANYL
     Route: 064
  16. AMITRIPTYLINE [Suspect]
     Active Substance: AMITRIPTYLINE
     Dosage: 25 MG, 1X/DAY (AT BEDTIME)
     Route: 064
  17. AMITRIPTYLINE [Suspect]
     Active Substance: AMITRIPTYLINE
     Route: 064
  18. ENOXAPARIN [Suspect]
     Active Substance: ENOXAPARIN
     Route: 064
  19. ENOXAPARIN [Suspect]
     Active Substance: ENOXAPARIN
     Route: 064
  20. HYDROMORPHONE [Suspect]
     Active Substance: HYDROMORPHONE
     Indication: Traumatic pain
     Dosage: 24 MG, 3X/DAY
     Route: 064
  21. HYDROMORPHONE [Suspect]
     Active Substance: HYDROMORPHONE
     Dosage: 24 MG, 3X/DAY (EVERY 8 HOURS)
     Route: 064
  22. HYDROMORPHONE [Suspect]
     Active Substance: HYDROMORPHONE
     Dosage: 24 MILLIGRAM, TID
     Route: 064
  23. GRAVOL [Suspect]
     Active Substance: DIMENHYDRINATE
     Route: 064
  24. GRAVOL [Suspect]
     Active Substance: DIMENHYDRINATE
     Route: 064
  25. GRAVOL [Suspect]
     Active Substance: DIMENHYDRINATE
     Route: 064
  26. PROCHLORPERAZINE [Suspect]
     Active Substance: PROCHLORPERAZINE
     Route: 064
  27. PROCHLORPERAZINE [Suspect]
     Active Substance: PROCHLORPERAZINE
     Route: 064
  28. PROCHLORPERAZINE [Suspect]
     Active Substance: PROCHLORPERAZINE
     Route: 064

REACTIONS (3)
  - Maternal exposure during pregnancy [Recovered/Resolved]
  - Premature baby [Recovered/Resolved]
  - Pulmonary embolism [Recovered/Resolved]
